FAERS Safety Report 8443695-8 (Version None)
Quarter: 2012Q2

REPORT INFORMATION
  Report Type: 
  Country: None (occurrence: None)
  Receive Date: 20120608
  Receipt Date: 20120528
  Transmission Date: 20120825
  Serious: Yes (Other)
  Sender: FDA-Public Use
  Company Number: DSA_57602_2012

PATIENT

DRUGS (5)
  1. OXALIPLATIN [Suspect]
     Indication: COLORECTAL CANCER METASTATIC
     Dosage: 85 MG/M2 INTRAVENOUS (NOT OTHERWISE SPECIFIED)
     Route: 042
  2. FLUOROURACIL [Suspect]
     Indication: COLORECTAL CANCER METASTATIC
     Dosage: 2400 MG/M2 INTRAVENOUS (NOT OTHERWISE SPECIFIED)
     Route: 042
  3. BEVACIZUMAB [Suspect]
     Indication: COLORECTAL CANCER METASTATIC
     Dosage: 5 MG/KG INTRAVENOUS (NOT OTHERWISE SPECIFIED)
     Route: 042
  4. LEUCOVORIN CALCIUM [Suspect]
     Indication: COLORECTAL CANCER METASTATIC
     Dosage: 400 MG/M2 INTRAVENOUS (NOT OTHERWISE SPECIFIED)
     Route: 042
  5. FLUOROURACIL [Suspect]
     Indication: COLORECTAL CANCER METASTATIC
     Dosage: 400 MG/M2 INTRAVENOUS BOLUS

REACTIONS (1)
  - THROMBOCYTOPENIA [None]
